FAERS Safety Report 7399519-3 (Version None)
Quarter: 2011Q2

REPORT INFORMATION
  Report Type: 
  Country: None (occurrence: None)
  Receive Date: 20110407
  Receipt Date: 20110328
  Transmission Date: 20111010
  Serious: Yes (Death, Other)
  Sender: FDA-Public Use
  Company Number: US-ELI_LILLY_AND_COMPANY-US201011005495

PATIENT
  Sex: Female
  Weight: 33.56 kg

DRUGS (20)
  1. HYDROXYCHLOROQUINE SULFATE [Concomitant]
  2. VITAMIN B [Concomitant]
     Dosage: 250 MG, UNK
  3. FORTEO [Suspect]
     Indication: OSTEOPOROSIS
     Dosage: 20 UG, DAILY (1/D)
     Dates: start: 20100423
  4. ASCORBIC ACID [Concomitant]
     Dosage: UNK, 2/D
  5. STOOL SOFTENER [Concomitant]
  6. FUROSEMIDE [Concomitant]
  7. LISINOPRIL [Concomitant]
  8. PERCOCET [Concomitant]
  9. PRILOSEC [Concomitant]
  10. ASPIRIN [Concomitant]
  11. VIT B12 [Concomitant]
  12. FORTEO [Suspect]
     Dosage: 20 UG, DAILY (1/D)
  13. ALPRAZOLAM [Concomitant]
  14. VITAMIN D [Concomitant]
     Dosage: UNK, DAILY (1/D)
  15. EFFEXOR [Concomitant]
  16. CALCIUM WITH VITAMIN D [Concomitant]
     Dosage: UNK, 2/D
  17. DILTIAZEM HCL [Concomitant]
  18. AMLODIPINE [Concomitant]
  19. KLOR-CON [Concomitant]
     Dosage: UNK, 2/D
  20. OXYGEN [Concomitant]
     Dosage: 2 LITER, UNK

REACTIONS (1)
  - SMALL CELL LUNG CANCER STAGE UNSPECIFIED [None]
